FAERS Safety Report 16036570 (Version 23)
Quarter: 2020Q1

REPORT INFORMATION
  Report Type: Spontaneous
  Country: BR (occurrence: BR)
  Receive Date: 20190305
  Receipt Date: 20200318
  Transmission Date: 20200409
  Serious: Yes (Hospitalization, Other)
  Sender: FDA-Public Use
  Company Number: BR-IPSEN BIOPHARMACEUTICALS, INC.-2018-15733

PATIENT
  Age: 25 Year
  Sex: Female

DRUGS (13)
  1. SOMATULINE [Suspect]
     Active Substance: LANREOTIDE ACETATE
     Route: 065
     Dates: start: 20190402
  2. NIFEDIPINE. [Concomitant]
     Active Substance: NIFEDIPINE
     Indication: HYPERTENSION
     Route: 048
  3. OMEPRAZOLE. [Concomitant]
     Active Substance: OMEPRAZOLE
     Indication: HYPERCHLORHYDRIA
     Route: 048
  4. HYDROCHLOROTHIAZIDE. [Concomitant]
     Active Substance: HYDROCHLOROTHIAZIDE
     Route: 048
  5. ENALAPRIL [Concomitant]
     Active Substance: ENALAPRIL
     Indication: HYPERTENSION
     Route: 048
  6. SIMVASTATIN. [Concomitant]
     Active Substance: SIMVASTATIN
     Route: 048
  7. SOMATULINE [Suspect]
     Active Substance: LANREOTIDE ACETATE
     Indication: NEUROENDOCRINE TUMOUR
     Dosage: 120 MILLIGRAM, BUTTOCKS
     Route: 030
     Dates: start: 20180802, end: 2018
  8. CERAZETTE [Concomitant]
     Indication: CONTRACEPTION
     Route: 048
  9. DENOSUMAB [Concomitant]
     Active Substance: DENOSUMAB
     Indication: METASTASIS
     Dosage: IN ARM SITE
     Route: 030
     Dates: start: 20180802
  10. PREGABALIN. [Concomitant]
     Active Substance: PREGABALIN
     Route: 048
  11. AMITRIPTYLINE [Concomitant]
     Active Substance: AMITRIPTYLINE
     Route: 048
  12. SOMATULINE [Suspect]
     Active Substance: LANREOTIDE ACETATE
     Dosage: 120 MILLIGRAM
     Dates: start: 20181227, end: 20190221
  13. PREDNISONE. [Concomitant]
     Active Substance: PREDNISONE
     Route: 048

REACTIONS (18)
  - Pain [Recovering/Resolving]
  - Malaise [Recovering/Resolving]
  - Intracranial aneurysm [Recovered/Resolved]
  - Pancreatic failure [Recovering/Resolving]
  - Ill-defined disorder [Unknown]
  - Injection site pain [Not Recovered/Not Resolved]
  - Anaemia [Recovering/Resolving]
  - Blood pressure fluctuation [Not Recovered/Not Resolved]
  - Nausea [Not Recovered/Not Resolved]
  - Inappropriate schedule of product administration [Unknown]
  - Injection site nodule [Recovered/Resolved]
  - Incorrect route of product administration [Unknown]
  - Diarrhoea [Recovering/Resolving]
  - Product dose omission [Unknown]
  - Pleural effusion [Unknown]
  - Injection site swelling [Recovering/Resolving]
  - Vomiting [Not Recovered/Not Resolved]
  - Injection site mass [Recovering/Resolving]

NARRATIVE: CASE EVENT DATE: 2016
